FAERS Safety Report 7109805-X (Version None)
Quarter: 2010Q4

REPORT INFORMATION
  Report Type: 
  Country: None (occurrence: None)
  Receive Date: 20101118
  Receipt Date: 20101105
  Transmission Date: 20110411
  Serious: Yes (Other)
  Sender: FDA-Public Use
  Company Number: PHHY2010FR75814

PATIENT
  Age: 76 Year
  Sex: Female

DRUGS (4)
  1. ACLASTA [Suspect]
     Indication: OSTEOPOROSIS
     Dosage: UNK
     Dates: start: 20101011
  2. SERETIDE [Concomitant]
     Indication: ASTHMA
     Dosage: UNK
  3. VENTOLIN [Concomitant]
     Indication: ASTHMA
     Dosage: UNK
  4. INHALATION [Concomitant]
     Indication: ASTHMA

REACTIONS (9)
  - ABDOMINAL PAIN [None]
  - EYE BURNS [None]
  - EYE INFLAMMATION [None]
  - EYELID PAIN [None]
  - FUNGAL INFECTION [None]
  - LOSS OF CONSCIOUSNESS [None]
  - MALAISE [None]
  - NAUSEA [None]
  - PAIN [None]
